FAERS Safety Report 16066299 (Version 1)
Quarter: 2019Q1

REPORT INFORMATION
  Report Type: Spontaneous
  Country: US (occurrence: US)
  Receive Date: 20190313
  Receipt Date: 20190313
  Transmission Date: 20190418
  Serious: No
  Sender: FDA-Public Use
  Company Number: US-GLAXOSMITHKLINE-US2019039251

PATIENT
  Sex: Female

DRUGS (1)
  1. FLOVENT [Suspect]
     Active Substance: FLUTICASONE PROPIONATE
     Indication: ALLERGIC BRONCHITIS
     Dosage: 2 PUFF(S), BID
     Route: 055

REACTIONS (3)
  - Wrong technique in product usage process [Unknown]
  - Therapeutic product effective for unapproved indication [Unknown]
  - Off label use [Unknown]
